FAERS Safety Report 12784437 (Version 2)
Quarter: 2016Q4

REPORT INFORMATION
  Report Type: Spontaneous
  Country: GB (occurrence: GB)
  Receive Date: 20160927
  Receipt Date: 20161021
  Transmission Date: 20170207
  Serious: Yes (Life-Threatening, Hospitalization, Other)
  Sender: FDA-Public Use
  Company Number: GB-TEVA-238666ISR

PATIENT
  Age: 56 Year
  Sex: Male

DRUGS (10)
  1. INDAPAMIDE. [Interacting]
     Active Substance: INDAPAMIDE
     Indication: CEREBROVASCULAR ACCIDENT PROPHYLAXIS
     Dates: end: 2010
  2. ASPIRIN. [Concomitant]
     Active Substance: ASPIRIN
     Route: 048
  3. GTN [Concomitant]
     Active Substance: NITROGLYCERIN
     Route: 060
  4. GLUCOSAMINE? [Concomitant]
     Route: 048
  5. ATORVASTATIN [Interacting]
     Active Substance: ATORVASTATIN
     Indication: CEREBROVASCULAR ACCIDENT PROPHYLAXIS
     Dates: end: 2010
  6. PERINDOPRIL [Interacting]
     Active Substance: PERINDOPRIL
     Indication: CEREBROVASCULAR ACCIDENT PROPHYLAXIS
     Dates: end: 2010
  7. EZETIMIBE. [Interacting]
     Active Substance: EZETIMIBE
     Route: 048
     Dates: end: 2010
  8. RANITIDINE. [Suspect]
     Active Substance: RANITIDINE
     Indication: CEREBROVASCULAR ACCIDENT PROPHYLAXIS
     Dosage: 300 MILLIGRAM DAILY;
     Dates: end: 2010
  9. TROLNITRATE PHOSPHATE [Concomitant]
  10. GLICLAZIDE [Concomitant]
     Active Substance: GLICLAZIDE

REACTIONS (3)
  - Stevens-Johnson syndrome [Recovered/Resolved]
  - Hypotension [Recovered/Resolved]
  - Drug interaction [Recovered/Resolved]

NARRATIVE: CASE EVENT DATE: 20100607
